FAERS Safety Report 6288283-7 (Version None)
Quarter: 2009Q3

REPORT INFORMATION
  Report Type: 
  Country: None (occurrence: None)
  Receive Date: 20090729
  Receipt Date: 20090720
  Transmission Date: 20100115
  Serious: Yes (Hospitalization)
  Sender: FDA-Public Use
  Company Number: FR-PFIZER INC-2009242449

PATIENT
  Age: 3 Month

DRUGS (2)
  1. TRIFLUCAN [Suspect]
     Indication: FUNGAL INFECTION
     Dosage: UNK
     Route: 063
     Dates: start: 20090515, end: 20090614
  2. LEVOTHYROX [Suspect]
     Indication: HYPOTHYROIDISM
     Dosage: UNK
     Route: 063

REACTIONS (2)
  - DRUG EXPOSURE VIA BREAST MILK [None]
  - HYPOSTHENURIA [None]
